FAERS Safety Report 4609368-4 (Version None)
Quarter: 2005Q1

REPORT INFORMATION
  Report Type: 
  Country: None (occurrence: None)
  Receive Date: 20050314
  Receipt Date: 20050301
  Transmission Date: 20050727
  Serious: Yes (Hospitalization, Other)
  Sender: FDA-Public Use
  Company Number: 2005039941

PATIENT
  Age: 54 Year
  Sex: Female

DRUGS (9)
  1. BEXTRA [Suspect]
     Indication: ARTHRALGIA
     Dosage: SEE IMAGE
     Route: 048
     Dates: start: 20040312, end: 20040315
  2. BEXTRA [Suspect]
     Indication: ARTHRALGIA
     Dosage: SEE IMAGE
     Route: 048
     Dates: start: 20040316, end: 20040318
  3. SYMBICORT TURBUHALER ^DRACO^ (BUDESONIDE, FORMOTEROL FUMARATE) [Concomitant]
  4. SALBUTAMOL SULFATE (SALBUTAMOL SULFATE) [Concomitant]
  5. CROMOGLICATE SODIUM (CROMOGLICATE SODIUM) [Concomitant]
  6. CETIRIZINE HCL [Concomitant]
  7. ACETAMINOPHEN [Concomitant]
  8. ZOPICLONE (ZOPICLONE) [Concomitant]
  9. CETIRIZINE (CETIRIZINE) [Concomitant]

REACTIONS (10)
  - ABDOMINAL SYMPTOM [None]
  - ASTHENIA [None]
  - EYE SWELLING [None]
  - FEELING COLD [None]
  - GINGIVAL RECESSION [None]
  - PYREXIA [None]
  - SWELLING FACE [None]
  - SYNCOPE [None]
  - TOOTH DISORDER [None]
  - URTICARIA [None]
